APPROVED DRUG PRODUCT: TENOFOVIR DISOPROXIL FUMARATE
Active Ingredient: TENOFOVIR DISOPROXIL FUMARATE
Strength: 300MG
Dosage Form/Route: TABLET;ORAL
Application: A209498 | Product #003 | TE Code: AB
Applicant: QILU PHARMACEUTICAL CO LTD
Approved: Mar 2, 2018 | RLD: No | RS: No | Type: RX